FAERS Safety Report 13183513 (Version 1)
Quarter: 2017Q1

REPORT INFORMATION
  Report Type: Spontaneous
  Country: TR (occurrence: TR)
  Receive Date: 20170203
  Receipt Date: 20170203
  Transmission Date: 20170428
  Serious: Yes (Hospitalization)
  Sender: FDA-Public Use
  Company Number: TR-ACCORD-047858

PATIENT
  Age: 47 Year
  Sex: Female

DRUGS (1)
  1. LEVETIRACETAM. [Suspect]
     Active Substance: LEVETIRACETAM
     Indication: EPILEPSY
     Dosage: INITIALLY DOSE STARTED WITH 500 MG TWICE PER DAY FOLLOWED BY 1500 MG TWICE PER DAY.

REACTIONS (1)
  - Granuloma annulare [Recovering/Resolving]
